FAERS Safety Report 9056145 (Version 2)
Quarter: 2013Q4

REPORT INFORMATION
  Report Type: Spontaneous
  Country: FR (occurrence: FR)
  Receive Date: 20130205
  Receipt Date: 20131212
  Transmission Date: 20140711
  Serious: Yes (Death, Other)
  Sender: FDA-Public Use
  Company Number: PHHY2013FR010329

PATIENT
  Age: 49 Year
  Sex: Female

DRUGS (7)
  1. ZOMETA [Suspect]
     Indication: BREAST CANCER METASTATIC
     Dosage: UNK UKN, UNK
     Route: 042
     Dates: end: 201211
  2. ZOMETA [Suspect]
     Dosage: UNK UKN, UNK
     Route: 042
     Dates: end: 201311
  3. XELODA [Concomitant]
     Dosage: 3000 MG, UNK
  4. IMOVANE [Concomitant]
     Dosage: UNK UKN, UNK
  5. AZANTAC [Concomitant]
     Dosage: UNK UKN, UNK
  6. DOLIPRANE [Concomitant]
     Dosage: UNK UKN, UNK
  7. INNOHEP [Concomitant]
     Dosage: 300 MG, QD

REACTIONS (2)
  - Death [Fatal]
  - Osteonecrosis of jaw [Recovered/Resolved]
